FAERS Safety Report 9238379 (Version 1)
Quarter: 2013Q1

REPORT INFORMATION
  Report Type: Spontaneous
  Country: US (occurrence: None)
  Receive Date: 20121106
  Receipt Date: 20121106
  Transmission Date: 20140127
  Serious: No
  Sender: FDA-Public Use
  Company Number: 1000037037

PATIENT
  Age: 67 Year
  Sex: Female

DRUGS (10)
  1. DALIRESP (ROFLUMILAST) (500 MICROGRAM, TABLETS) [Suspect]
     Dosage: 500 MCG (500 MCG, 1 IN 1 D) , ORAL
     Route: 048
     Dates: start: 201204, end: 2012
  2. DALIRESP (ROFLUMILAST) (500 MICROGRAM, TABLETS) [Suspect]
     Dosage: 500 MCG (500 MCG, 1 IN 1 D) , ORAL
     Route: 048
     Dates: start: 201204, end: 2012
  3. DALIRESP [Suspect]
     Dosage: 500 MCG (500 MCG, 1 IN 1 D), ORAL
     Route: 048
     Dates: start: 201206, end: 2012
  4. DALIRESP [Suspect]
     Dosage: 500 MCG (500 MCG, 1 IN 1 D), ORAL
     Route: 048
     Dates: start: 201206, end: 2012
  5. SPRIVA (TIOTROPIUM BROMIDE) (TIOTROPIUM BROMIDE) [Concomitant]
  6. ADVAIR (SERETIDE) (SERETIDE) [Concomitant]
  7. NEXIUM (ESOMEPRAZOLE) (ESOMEPRAZOLE) [Concomitant]
  8. NEXIUM (ESOMEPRAZOLE) (ESOMEPRAZOLE) [Concomitant]
  9. SINGULAIR [Concomitant]
  10. BENICAR (OLMESARTAN MEDOXOMIL) (OLMESARTAN MEDOXOMIL( [Concomitant]

REACTIONS (2)
  - Back pain [None]
  - Abnormal dreams [None]
